FAERS Safety Report 6233891-2 (Version None)
Quarter: 2009Q2

REPORT INFORMATION
  Report Type: 
  Country: None (occurrence: None)
  Receive Date: 20090616
  Receipt Date: 20090616
  Transmission Date: 20091009
  Serious: Yes (Hospitalization)
  Sender: FDA-Public Use
  Company Number: None

PATIENT
  Age: 86 Year
  Sex: Male
  Weight: 64.4108 kg

DRUGS (2)
  1. CEPHALEXIN [Suspect]
     Indication: INFECTION PROPHYLAXIS
     Dosage: PO
     Route: 048
     Dates: start: 20080212, end: 20090519
  2. CLINDAMYCIN HCL [Suspect]
     Dosage: PO
     Route: 048

REACTIONS (1)
  - STEVENS-JOHNSON SYNDROME [None]
